FAERS Safety Report 14931380 (Version 1)
Quarter: 2018Q2

REPORT INFORMATION
  Report Type: Other
  Country: GR (occurrence: GR)
  Receive Date: 20180524
  Receipt Date: 20180524
  Transmission Date: 20180711
  Serious: Yes (Other)
  Sender: FDA-Public Use
  Company Number: GR-MERCK KGAA-2048369

PATIENT
  Age: 9 Month
  Sex: Male

DRUGS (1)
  1. NOVOTHYROX [Suspect]
     Active Substance: LEVOTHYROXINE SODIUM
     Indication: HYPOTHYROIDISM

REACTIONS (9)
  - Syndactyly [None]
  - Trichorrhexis [None]
  - Atrial septal defect [None]
  - Congenital ectodermal dysplasia [None]
  - Dacryostenosis congenital [None]
  - Micrognathia [None]
  - Gene mutation [None]
  - Nail dystrophy [None]
  - Foetal exposure during pregnancy [None]
